FAERS Safety Report 15607075 (Version 1)
Quarter: 2018Q4

REPORT INFORMATION
  Report Type: Report from Study
  Country: CN (occurrence: CN)
  Receive Date: 20181112
  Receipt Date: 20181112
  Transmission Date: 20190205
  Serious: Yes (Hospitalization)
  Sender: FDA-Public Use
  Company Number: CN-JNJFOC-20181045730

PATIENT
  Age: 85 Year
  Sex: Male
  Weight: 46 kg

DRUGS (2)
  1. XARELTO [Suspect]
     Active Substance: RIVAROXABAN
     Indication: CEREBROVASCULAR ACCIDENT PROPHYLAXIS
     Route: 048
     Dates: start: 20150115
  2. XARELTO [Suspect]
     Active Substance: RIVAROXABAN
     Indication: THROMBOSIS PROPHYLAXIS
     Route: 048
     Dates: start: 20150115

REACTIONS (6)
  - Acute left ventricular failure [Recovered/Resolved]
  - Acute left ventricular failure [Recovered/Resolved]
  - Acute left ventricular failure [Recovered/Resolved]
  - Cardiac failure [Recovered/Resolved]
  - Acute left ventricular failure [Recovered/Resolved]
  - Acute left ventricular failure [Recovered/Resolved]

NARRATIVE: CASE EVENT DATE: 20161003
